FAERS Safety Report 9835384 (Version 2)
Quarter: 2014Q1

REPORT INFORMATION
  Report Type: Spontaneous
  Country: US (occurrence: US)
  Receive Date: 20140122
  Receipt Date: 20140122
  Transmission Date: 20141002
  Serious: No
  Sender: FDA-Public Use
  Company Number: US-BRISTOL-MYERS SQUIBB COMPANY-19536366

PATIENT
  Age: 69 Year
  Sex: Male
  Weight: 88.89 kg

DRUGS (1)
  1. ELIQUIS [Suspect]
     Indication: ATRIAL FIBRILLATION
     Dates: start: 201309

REACTIONS (6)
  - Diarrhoea [Recovering/Resolving]
  - Arthralgia [Unknown]
  - Skin discolouration [Unknown]
  - Swelling [Unknown]
  - Drug dose omission [Unknown]
  - Abdominal discomfort [Unknown]
